FAERS Safety Report 4510446-9 (Version None)
Quarter: 2004Q4

REPORT INFORMATION
  Report Type: 
  Country: None (occurrence: None)
  Receive Date: 20041124
  Receipt Date: 20041122
  Transmission Date: 20050328
  Serious: Yes (Other)
  Sender: FDA-Public Use
  Company Number: US-GLAXOSMITHKLINE-A0534839A

PATIENT
  Age: 46 Year
  Sex: Female

DRUGS (3)
  1. ADVAIR [Suspect]
     Indication: ASTHMA
     Dosage: 1PUFF TWICE PER DAY
     Route: 055
     Dates: start: 20040501, end: 20040601
  2. FLOVENT [Concomitant]
  3. ALBUTEROL [Concomitant]

REACTIONS (4)
  - ASTHENIA [None]
  - FLUSHING [None]
  - HEART RATE INCREASED [None]
  - VISUAL ACUITY REDUCED [None]
